FAERS Safety Report 13791593 (Version 1)
Quarter: 2017Q3

REPORT INFORMATION
  Report Type: Spontaneous
  Country: NO (occurrence: NO)
  Receive Date: 20170725
  Receipt Date: 20170725
  Transmission Date: 20171127
  Serious: Yes (Life-Threatening)
  Sender: FDA-Public Use
  Company Number: PHHY2017NO107716

PATIENT
  Age: 51 Year
  Sex: Female

DRUGS (2)
  1. METOPROLOL TARTRATE. [Concomitant]
     Active Substance: METOPROLOL TARTRATE
     Indication: PRODUCT USED FOR UNKNOWN INDICATION
     Dosage: 50 MG, QD
     Route: 065
  2. CETIRIZINE [Suspect]
     Active Substance: CETIRIZINE HYDROCHLORIDE
     Indication: HYPERSENSITIVITY
     Dosage: 10 MG, QD
     Route: 065
     Dates: start: 20170517, end: 20170628

REACTIONS (2)
  - Palpitations [Recovered/Resolved]
  - Long QT syndrome [Recovered/Resolved]

NARRATIVE: CASE EVENT DATE: 20170628
